FAERS Safety Report 10096108 (Version 1)
Quarter: 2014Q2

REPORT INFORMATION
  Report Type: Spontaneous
  Country: US (occurrence: US)
  Receive Date: 20140422
  Receipt Date: 20140422
  Transmission Date: 20141212
  Serious: No
  Sender: FDA-Public Use
  Company Number: US-MYLANLABS-2013S1028035

PATIENT
  Sex: Male

DRUGS (1)
  1. PAROXETINE TABLETS USP [Suspect]
     Indication: ANXIETY

REACTIONS (1)
  - Anxiety [Recovered/Resolved]
